FAERS Safety Report 20376176 (Version 1)
Quarter: 2022Q1

REPORT INFORMATION
  Report Type: Spontaneous
  Country: US (occurrence: None)
  Receive Date: 20220125
  Receipt Date: 20220125
  Transmission Date: 20220423
  Serious: No
  Sender: FDA-Public Use
  Company Number: None

PATIENT
  Age: 38 Year
  Sex: Female
  Weight: 94.5 kg

DRUGS (4)
  1. DULOXETINE [Suspect]
     Active Substance: DULOXETINE
     Indication: Anxiety
     Dosage: OTHER QUANTITY : 2 TABLET(S);?FREQUENCY : AT BEDTIME;?
     Route: 048
     Dates: start: 20200116, end: 20201215
  2. ROBAXIN [Concomitant]
  3. LOSARTAN [Concomitant]
     Active Substance: LOSARTAN
  4. VESICARE [Concomitant]
     Active Substance: SOLIFENACIN SUCCINATE

REACTIONS (6)
  - Suicidal ideation [None]
  - Nausea [None]
  - Dizziness [None]
  - Anger [None]
  - Night sweats [None]
  - Temperature intolerance [None]
